FAERS Safety Report 14134869 (Version 1)
Quarter: 2017Q4

REPORT INFORMATION
  Report Type: Report from Study
  Country: BR (occurrence: BR)
  Receive Date: 20171027
  Receipt Date: 20171027
  Transmission Date: 20180321
  Serious: Yes (Other)
  Sender: FDA-Public Use
  Company Number: BR-JNJFOC-20171027603

PATIENT
  Sex: Male

DRUGS (3)
  1. GLIFAGE [Concomitant]
     Active Substance: METFORMIN HYDROCHLORIDE
     Route: 065
  2. STELARA [Suspect]
     Active Substance: USTEKINUMAB
     Indication: PSORIASIS
     Route: 058
     Dates: start: 20140616, end: 20170420
  3. JARDIANCE [Concomitant]
     Active Substance: EMPAGLIFLOZIN
     Route: 065

REACTIONS (9)
  - Weight decreased [Unknown]
  - Hypersensitivity [Unknown]
  - Pyrexia [Unknown]
  - Peripheral swelling [Unknown]
  - Sciatic nerve neuropathy [Unknown]
  - Psoriatic arthropathy [Unknown]
  - Lymphadenopathy [Unknown]
  - Pain [Unknown]
  - Blood glucose increased [Unknown]
